FAERS Safety Report 6029308-3 (Version None)
Quarter: 2009Q1

REPORT INFORMATION
  Report Type: 
  Country: None (occurrence: None)
  Receive Date: 20090106
  Receipt Date: 20081216
  Transmission Date: 20090719
  Serious: No
  Sender: FDA-Public Use
  Company Number: US-B.I. PHARMACEUTICALS,INC./RIDGEFIELD-2008-BP-18801BP

PATIENT
  Sex: Male

DRUGS (2)
  1. SPIRIVA [Suspect]
     Indication: ASTHMA
     Dosage: 18MCG
     Route: 055
     Dates: start: 20071201
  2. ADVAIR DISKUS 250/50 [Concomitant]
     Indication: ASTHMA
     Route: 055

REACTIONS (4)
  - BRONCHITIS [None]
  - PNEUMONIA PRIMARY ATYPICAL [None]
  - VISION BLURRED [None]
  - VISUAL ACUITY REDUCED [None]
